FAERS Safety Report 12297255 (Version 1)
Quarter: 2016Q2

REPORT INFORMATION
  Report Type: Spontaneous
  Country: US (occurrence: US)
  Receive Date: 20160422
  Receipt Date: 20160422
  Transmission Date: 20160815
  Serious: Yes (Other)
  Sender: FDA-Public Use
  Company Number: US-BAYER-2016-075191

PATIENT
  Age: 86 Year
  Sex: Male

DRUGS (1)
  1. AFRIN ORIGINAL [Suspect]
     Active Substance: OXYMETAZOLINE HYDROCHLORIDE
     Indication: NASAL CONGESTION
     Dosage: UNK, INHALED
     Dates: end: 20160416

REACTIONS (4)
  - Tongue disorder [None]
  - Speech disorder [None]
  - Product use issue [None]
  - Dysphagia [None]
